FAERS Safety Report 7678497-3 (Version None)
Quarter: 2011Q3

REPORT INFORMATION
  Report Type: 
  Country: None (occurrence: None)
  Receive Date: 20110811
  Receipt Date: 20110729
  Transmission Date: 20111222
  Serious: Yes (Hospitalization, Other)
  Sender: FDA-Public Use
  Company Number: NL-PFIZER INC-2011181241

PATIENT

DRUGS (1)
  1. PROPRANOLOL HCL [Suspect]
     Dosage: UNK

REACTIONS (2)
  - BRONCHIAL HYPERREACTIVITY [None]
  - DIASTOLIC HYPOTENSION [None]
